FAERS Safety Report 14598322 (Version 1)
Quarter: 2018Q1

REPORT INFORMATION
  Report Type: Spontaneous
  Country: US (occurrence: US)
  Receive Date: 20180302
  Receipt Date: 20180302
  Transmission Date: 20180509
  Serious: Yes (Hospitalization)
  Sender: FDA-Public Use
  Company Number: None

PATIENT
  Age: 65 Year
  Sex: Male
  Weight: 123.5 kg

DRUGS (4)
  1. 5-FLUOROURACIL (5-FU) [Suspect]
     Active Substance: FLUOROURACIL
     Dates: end: 20171224
  2. LEUCOVORIN CALCIUM. [Suspect]
     Active Substance: LEUCOVORIN CALCIUM
     Dates: end: 20171222
  3. ELOXATIN [Suspect]
     Active Substance: OXALIPLATIN
     Dates: end: 20171222
  4. XELODA [Suspect]
     Active Substance: CAPECITABINE
     Dates: end: 20180130

REACTIONS (6)
  - Emphysema [None]
  - Thrombocytopenia [None]
  - Myocardial ischaemia [None]
  - Dyspnoea [None]
  - Atrial flutter [None]
  - Chronic obstructive pulmonary disease [None]

NARRATIVE: CASE EVENT DATE: 20180221
